FAERS Safety Report 4322374-2 (Version None)
Quarter: 2004Q1

REPORT INFORMATION
  Report Type: 
  Country: None (occurrence: None)
  Receive Date: 20040324
  Receipt Date: 20040212
  Transmission Date: 20041129
  Serious: Yes (Hospitalization)
  Sender: FDA-Public Use
  Company Number: 200411088US

PATIENT
  Sex: Female
  Weight: 49.9 kg

DRUGS (11)
  1. TAXOTERE [Suspect]
     Indication: NON-SMALL CELL LUNG CANCER
     Route: 042
     Dates: start: 20040126, end: 20040126
  2. GEMCITABINE [Suspect]
     Indication: NON-SMALL CELL LUNG CANCER
     Route: 042
     Dates: start: 20040126, end: 20040126
  3. MEGACE [Concomitant]
     Route: 048
  4. OXYCODONE [Concomitant]
  5. ACETAMINOPHEN AND HYDROCODONE BITARTRATE [Concomitant]
     Dosage: DOSE: 5-325
     Route: 048
  6. DURAGESIC [Concomitant]
     Route: 061
  7. LORAZEPAM [Concomitant]
     Route: 048
  8. SENOKOT [Concomitant]
     Dosage: DOSE: 1-2
     Route: 048
  9. MULTIVITAMINS, PLAIN [Concomitant]
     Route: 048
  10. OMEPRAZOLE [Concomitant]
     Route: 048
  11. PAXIL [Concomitant]
     Route: 048

REACTIONS (15)
  - ASTHENIA [None]
  - BLOOD SODIUM DECREASED [None]
  - DECREASED APPETITE [None]
  - HAEMATOCRIT DECREASED [None]
  - HAEMOGLOBIN DECREASED [None]
  - HEADACHE [None]
  - LOBAR PNEUMONIA [None]
  - MALIGNANT NEOPLASM PROGRESSION [None]
  - METASTASES TO ADRENALS [None]
  - METASTASES TO BONE [None]
  - METASTASES TO LUNG [None]
  - NON-SMALL CELL LUNG CANCER [None]
  - PLATELET COUNT DECREASED [None]
  - SPINAL CORD COMPRESSION [None]
  - WEIGHT DECREASED [None]
